FAERS Safety Report 15001087 (Version 1)
Quarter: 2018Q2

REPORT INFORMATION
  Report Type: Spontaneous
  Country: AT (occurrence: AT)
  Receive Date: 20180612
  Receipt Date: 20180612
  Transmission Date: 20180711
  Serious: Yes (Hospitalization)
  Sender: FDA-Public Use
  Company Number: AT-ALSI-201800392

PATIENT
  Age: 60 Year
  Sex: Female

DRUGS (1)
  1. OXYGEN. [Suspect]
     Active Substance: OXYGEN
     Indication: ACCIDENTAL EXPOSURE TO PRODUCT
     Route: 003
     Dates: start: 20180517, end: 20180517

REACTIONS (3)
  - Accidental exposure to product [Not Recovered/Not Resolved]
  - Product quality issue [Not Recovered/Not Resolved]
  - Frostbite [Not Recovered/Not Resolved]

NARRATIVE: CASE EVENT DATE: 20180517
